FAERS Safety Report 5150372-8 (Version None)
Quarter: 2006Q4

REPORT INFORMATION
  Report Type: 
  Country: None (occurrence: None)
  Receive Date: 20061108
  Receipt Date: 20061027
  Transmission Date: 20070319
  Serious: Yes (Disabling)
  Sender: FDA-Public Use
  Company Number: 2006133216

PATIENT
  Age: 59 Year
  Sex: Male

DRUGS (2)
  1. ATARAX-P (IV/IM)(HYDROXYZINE HYDROCHLORIDE) [Suspect]
     Dosage: INTRAMUSCULAR
     Route: 030
  2. ATROPINE SULFATE [Concomitant]

REACTIONS (1)
  - MUSCLE ATROPHY [None]
